FAERS Safety Report 6152612-5 (Version None)
Quarter: 2009Q2

REPORT INFORMATION
  Report Type: 
  Country: None (occurrence: None)
  Receive Date: 20090409
  Receipt Date: 20090402
  Transmission Date: 20091009
  Serious: Yes (Hospitalization)
  Sender: FDA-Public Use
  Company Number: DSA_33450_2009

PATIENT
  Age: 78 Year
  Sex: Female
  Weight: 68.0396 kg

DRUGS (7)
  1. KENAZINE 12.5 MG (NOT SPECIFIED) [Suspect]
     Indication: HUNTINGTON'S CHOREA
     Dosage: 12.5 MG
     Dates: start: 20090209, end: 20090303
  2. DEMEROL [Suspect]
     Indication: DRUG USE FOR UNKNOWN INDICATION
     Dosage: DF
     Dates: end: 20090101
  3. ZOLPIDEM TARTRATE [Concomitant]
  4. OMEPRAZOLE [Concomitant]
  5. LEVOTHROID [Concomitant]
  6. DARVOCET /00758701/ [Concomitant]
  7. MIRATAB [Concomitant]

REACTIONS (4)
  - DRUG TOXICITY [None]
  - GAIT DEVIATION [None]
  - INCOHERENT [None]
  - SUICIDAL IDEATION [None]
